FAERS Safety Report 21669430 (Version 1)
Quarter: 2022Q4

REPORT INFORMATION
  Report Type: Spontaneous
  Country: IT (occurrence: IT)
  Receive Date: 20221201
  Receipt Date: 20221201
  Transmission Date: 20230113
  Serious: Yes (Hospitalization)
  Sender: FDA-Public Use
  Company Number: IT-INSMED, INC.-2022-02082-IT

PATIENT
  Age: 16 Year
  Sex: Female

DRUGS (12)
  1. LINEZOLID [Suspect]
     Active Substance: LINEZOLID
     Indication: Mycobacterium abscessus infection
     Dosage: 600 MG, 2X/DAY(600 MILLIGRAM, BID)
     Route: 048
     Dates: end: 202209
  2. LINEZOLID [Suspect]
     Active Substance: LINEZOLID
     Dosage: UNK, 2X/DAY (BID)
     Route: 048
     Dates: start: 20221005, end: 2022
  3. ARIKAYCE [Suspect]
     Active Substance: AMIKACIN
     Indication: Mycobacterium abscessus infection
     Dosage: UNK, 1X/DAY (QD)
     Route: 055
     Dates: start: 20220722, end: 20221003
  4. CLOFAZIMINE [Concomitant]
     Active Substance: CLOFAZIMINE
     Indication: Mycobacterium abscessus infection
     Dosage: UNK
     Route: 065
     Dates: end: 20221003
  5. VENTOLIN [Concomitant]
     Active Substance: ALBUTEROL SULFATE
     Dosage: 2 DF, 2X/DAY (2 DOSAGE FORM, (2 PUFFS) BID)
     Route: 065
  6. MUCOCLEAR [AMBROXOL HYDROCHLORIDE] [Concomitant]
     Dosage: 1 DF, 2X/DAY (1 DOSAGE FORM, 1 VIAL (6%) TWICE A DAY)
     Route: 065
  7. SODIUM CHLORIDE [Concomitant]
     Active Substance: SODIUM CHLORIDE
     Dosage: UNK, 1X/DAY (QD)
     Route: 065
  8. OMEPRAZOLE [Concomitant]
     Active Substance: OMEPRAZOLE
     Dosage: 20 MG, 1X/DAY (20 MILLIGRAM, QD)
     Route: 048
  9. ELEXACAFTOR\IVACAFTOR\TEZACAFTOR [Concomitant]
     Active Substance: ELEXACAFTOR\IVACAFTOR\TEZACAFTOR
     Indication: Cystic fibrosis
     Dosage: UNK
     Route: 065
     Dates: start: 2022
  10. ELEXACAFTOR\IVACAFTOR\TEZACAFTOR [Concomitant]
     Active Substance: ELEXACAFTOR\IVACAFTOR\TEZACAFTOR
     Dosage: UNK
     Route: 065
  11. DEURSIL [Concomitant]
     Active Substance: URSODIOL
     Indication: Product used for unknown indication
     Dosage: 450 MG, 1X/DAY (450 MILLIGRAM, QD)
     Route: 048
  12. PULMOZYME [Concomitant]
     Active Substance: DORNASE ALFA
     Dosage: 1 DF, 1X/DAY (1 DOSAGE FORM, 1 VIAL QD)
     Route: 065

REACTIONS (3)
  - Peripheral motor neuropathy [Not Recovered/Not Resolved]
  - Peripheral sensory neuropathy [Not Recovered/Not Resolved]
  - COVID-19 [Recovered/Resolved]

NARRATIVE: CASE EVENT DATE: 20220101
